FAERS Safety Report 19492594 (Version 1)
Quarter: 2021Q3

REPORT INFORMATION
  Report Type: Spontaneous
  Country: MX (occurrence: MX)
  Receive Date: 20210705
  Receipt Date: 20210705
  Transmission Date: 20211014
  Serious: Yes (Other)
  Sender: FDA-Public Use
  Company Number: MX-ASTRAZENECA-2021A581491

PATIENT
  Sex: Female

DRUGS (2)
  1. DAPAGLIFOZINA [DAPAGLIFOZIN] [Suspect]
     Active Substance: DAPAGLIFLOZIN
     Indication: METABOLIC DISORDER
     Route: 048
  2. METFORMIN [Concomitant]
     Active Substance: METFORMIN HYDROCHLORIDE

REACTIONS (1)
  - Diarrhoea [Recovered/Resolved]
